FAERS Safety Report 4782373-3 (Version None)
Quarter: 2005Q3

REPORT INFORMATION
  Report Type: 
  Country: None (occurrence: None)
  Receive Date: 20050914
  Receipt Date: 20050706
  Transmission Date: 20060218
  Serious: Yes (Other)
  Sender: FDA-Public Use
  Company Number: 163-20785-05070143

PATIENT
  Sex: 0

DRUGS (2)
  1. THALOMID [Suspect]
     Indication: SMALL CELL LUNG CANCER STAGE UNSPECIFIED
     Dosage: CYCLE 1 (6 WKS) 400MG/DAY ON DAYS 15-28, CYCLE 2+ (3 WKS) 400MG QHS, ORAL
     Route: 048
     Dates: start: 20030604, end: 20031001
  2. IRINOTECAN HCL [Suspect]
     Indication: SMALL CELL LUNG CANCER STAGE UNSPECIFIED
     Dosage: CYCLE 1 (6 WKS) 350MG/M2 IV OVER 90MIN ON DAYS 1 AND 22, CYCLE 2 (3 WKS) 350MG/M2 IV OVER 90MIN ON D
     Route: 042
     Dates: start: 20030521, end: 20031001

REACTIONS (2)
  - DIARRHOEA [None]
  - NEUTROPHIL COUNT DECREASED [None]
